FAERS Safety Report 7683830-2 (Version None)
Quarter: 2011Q3

REPORT INFORMATION
  Report Type: 
  Country: None (occurrence: None)
  Receive Date: 20110815
  Receipt Date: 20110810
  Transmission Date: 20111222
  Serious: Yes (Other)
  Sender: FDA-Public Use
  Company Number: US-ABBOTT-11P-163-0845478-00

PATIENT
  Sex: Female
  Weight: 49.94 kg

DRUGS (6)
  1. HUMIRA [Suspect]
  2. HUMIRA [Suspect]
     Indication: PSORIASIS
     Route: 058
     Dates: start: 20090501, end: 20090901
  3. ZYRTEC [Concomitant]
     Indication: HYPERSENSITIVITY
  4. FIBRO-CARE [Concomitant]
     Indication: FIBROMYALGIA
     Dosage: TAKES OCCASIONALLY
  5. ZYRTEC [Concomitant]
     Indication: SEASONAL ALLERGY
  6. NEXIUM [Concomitant]
     Indication: GASTROOESOPHAGEAL REFLUX DISEASE

REACTIONS (2)
  - RASH PAPULAR [None]
  - ABORTION SPONTANEOUS [None]
